FAERS Safety Report 6054982-5 (Version None)
Quarter: 2009Q1

REPORT INFORMATION
  Report Type: 
  Country: None (occurrence: None)
  Receive Date: 20090128
  Receipt Date: 20090121
  Transmission Date: 20090719
  Serious: Yes (Hospitalization)
  Sender: FDA-Public Use
  Company Number: FR-WYE-G02982409

PATIENT
  Sex: Male

DRUGS (5)
  1. TAZOCILLINE [Suspect]
     Indication: FEBRILE NEUTROPENIA
     Dosage: UNKNOWN
     Route: 042
     Dates: start: 20081126, end: 20081201
  2. FORTUM [Suspect]
     Indication: FEBRILE NEUTROPENIA
     Dosage: UNKNOWN
     Dates: start: 20081201
  3. ZOVIRAX [Suspect]
     Indication: FEBRILE NEUTROPENIA
     Dosage: UNKNOWN
     Dates: start: 20081126
  4. VANCOMYCIN [Suspect]
     Indication: FEBRILE NEUTROPENIA
     Dosage: UNKNOWN
     Route: 042
     Dates: start: 20081126
  5. FLAGYL [Suspect]
     Indication: FEBRILE NEUTROPENIA
     Dosage: UNKNOWN
     Route: 042
     Dates: start: 20081126

REACTIONS (7)
  - ABDOMINAL PAIN [None]
  - CONDITION AGGRAVATED [None]
  - DRUG INEFFECTIVE [None]
  - JAUNDICE CHOLESTATIC [None]
  - RENAL FAILURE ACUTE [None]
  - THROMBOCYTOPENIC PURPURA [None]
  - TOXIC SKIN ERUPTION [None]
